FAERS Safety Report 9821870 (Version 1)
Quarter: 2014Q1

REPORT INFORMATION
  Report Type: Spontaneous
  Country: RS (occurrence: RS)
  Receive Date: 20140116
  Receipt Date: 20140116
  Transmission Date: 20141002
  Serious: Yes (Other)
  Sender: FDA-Public Use
  Company Number: RS-BAXTER-2014BAX001295

PATIENT
  Sex: 0

DRUGS (4)
  1. KIOVIG 100 ML [Suspect]
     Indication: AUTOIMMUNE HAEMOLYTIC ANAEMIA
     Route: 042
  2. KIOVIG 100 ML [Suspect]
     Indication: OFF LABEL USE
  3. DANAZOL [Suspect]
     Indication: AUTOIMMUNE HAEMOLYTIC ANAEMIA
  4. AZATHIOPRINE [Suspect]
     Indication: AUTOIMMUNE HAEMOLYTIC ANAEMIA

REACTIONS (1)
  - No therapeutic response [Not Recovered/Not Resolved]
